FAERS Safety Report 5523926-4 (Version None)
Quarter: 2007Q4

REPORT INFORMATION
  Report Type: 
  Country: None (occurrence: None)
  Receive Date: 20071121
  Receipt Date: 20071120
  Transmission Date: 20080405
  Serious: Yes (Death)
  Sender: FDA-Public Use
  Company Number: US-SHR-US-2007-036527

PATIENT
  Age: 70 Year
  Sex: Female
  Weight: 113.38 kg

DRUGS (23)
  1. BETASERON [Suspect]
     Dosage: 8 MIU, EVERY 2D
     Route: 058
     Dates: start: 20041220
  2. DETROL                                  /USA/ [Concomitant]
     Indication: BLADDER SPASM
  3. PLAVIX [Concomitant]
     Indication: ANTIPLATELET THERAPY
  4. FUROSEMIDE [Concomitant]
  5. IMDUR [Concomitant]
  6. LISINOPRIL [Concomitant]
     Indication: BLOOD PRESSURE
  7. METOPROLOL [Concomitant]
     Indication: BLOOD PRESSURE
  8. LIPITOR [Concomitant]
  9. PROTONIX [Concomitant]
  10. DIGITEK [Concomitant]
     Indication: CARDIAC DISORDER
  11. EFFEXOR XR [Concomitant]
     Indication: DEPRESSION
  12. FOSAMAX [Concomitant]
     Indication: OSTEOPOROSIS
  13. LUMIGAN [Concomitant]
     Indication: GLAUCOMA
  14. MICARDIS [Concomitant]
     Indication: BLOOD PRESSURE
  15. ASPIRIN [Concomitant]
  16. VITAMIN D [Concomitant]
  17. VITAMIN E [Concomitant]
     Dosage: 400 UNK, UNK
  18. VITAMIN B-12 [Concomitant]
     Dosage: 6 UNK, UNK
  19. FOLIC ACID [Concomitant]
     Dosage: 400 A?G, UNK
  20. DARVON-N [Concomitant]
     Indication: PAIN
     Dosage: UNK, AS REQ'D
  21. VITAMIN B6 [Concomitant]
     Dosage: 2 UNK, UNK
  22. LEVEMIR [Concomitant]
  23. AVANDIA [Concomitant]

REACTIONS (1)
  - CARDIOMYOPATHY [None]
